FAERS Safety Report 11919959 (Version 2)
Quarter: 2016Q1

REPORT INFORMATION
  Report Type: Report from Study
  Country: US (occurrence: US)
  Receive Date: 20160115
  Receipt Date: 20160129
  Transmission Date: 20160526
  Serious: Yes (Other)
  Sender: FDA-Public Use
  Company Number: US-SA-2016SA007466

PATIENT
  Age: 41 Year
  Sex: Female

DRUGS (5)
  1. ALIROCUMAB PREFILLED PEN [Concomitant]
     Active Substance: ALIROCUMAB
     Indication: TYPE IIA HYPERLIPIDAEMIA
     Dates: start: 20160101
  2. PRALUENT [Suspect]
     Active Substance: ALIROCUMAB
     Indication: TYPE IIA HYPERLIPIDAEMIA
     Route: 058
     Dates: start: 20160101
  3. GABAPENTIN. [Concomitant]
     Active Substance: GABAPENTIN
  4. PRALUENT [Suspect]
     Active Substance: ALIROCUMAB
     Indication: TYPE IIA HYPERLIPIDAEMIA
     Route: 058
     Dates: start: 20160101
  5. NIACIN. [Concomitant]
     Active Substance: NIACIN

REACTIONS (15)
  - Burning sensation [Recovering/Resolving]
  - Fatigue [Not Recovered/Not Resolved]
  - Urinary tract infection [Recovered/Resolved]
  - Chills [Recovered/Resolved]
  - Myalgia [Not Recovered/Not Resolved]
  - Renal pain [Not Recovered/Not Resolved]
  - Middle insomnia [Recovered/Resolved]
  - Pain [Recovered/Resolved]
  - Hot flush [Recovered/Resolved]
  - Injection site rash [Recovered/Resolved]
  - Hyperaesthesia [Recovering/Resolving]
  - Sinus headache [Recovered/Resolved]
  - Fatigue [Recovered/Resolved]
  - Bladder pain [Not Recovered/Not Resolved]
  - Mucous stools [Recovered/Resolved]

NARRATIVE: CASE EVENT DATE: 201601
